FAERS Safety Report 10517767 (Version 2)
Quarter: 2014Q4

REPORT INFORMATION
  Report Type: Report from Study
  Country: US (occurrence: US)
  Receive Date: 20141015
  Receipt Date: 20141107
  Transmission Date: 20150528
  Serious: Yes (Death, Hospitalization, Other)
  Sender: FDA-Public Use
  Company Number: US-AMGEN-USASL2014077868

PATIENT
  Age: 93 Year
  Sex: Female
  Weight: 73.92 kg

DRUGS (1)
  1. PROLIA [Suspect]
     Active Substance: DENOSUMAB
     Indication: OSTEOPOROSIS POSTMENOPAUSAL
     Dosage: 60 MG, Q6MO (Q181 DAYS)
     Route: 058
     Dates: start: 20110506

REACTIONS (2)
  - Respiratory failure [Unknown]
  - Pneumonia [Fatal]

NARRATIVE: CASE EVENT DATE: 20120214
